FAERS Safety Report 20015623 (Version 1)
Quarter: 2021Q4

REPORT INFORMATION
  Report Type: Spontaneous
  Country: US (occurrence: None)
  Receive Date: 20211029
  Receipt Date: 20211029
  Transmission Date: 20220303
  Serious: Yes (Hospitalization)
  Sender: FDA-Public Use
  Company Number: None

PATIENT
  Age: 51 Year
  Sex: Female

DRUGS (1)
  1. SUNITINIB [Suspect]
     Active Substance: SUNITINIB
     Dosage: OTHER FREQUENCY : OTHER;?
     Route: 048
     Dates: start: 201911

REACTIONS (2)
  - Post procedural infection [None]
  - Therapy interrupted [None]

NARRATIVE: CASE EVENT DATE: 20210723
